FAERS Safety Report 7249479-0 (Version None)
Quarter: 2011Q1

REPORT INFORMATION
  Report Type: 
  Country: None (occurrence: None)
  Receive Date: 20110128
  Receipt Date: 20101207
  Transmission Date: 20110831
  Serious: Yes (Hospitalization, Other)
  Sender: FDA-Public Use
  Company Number: US-BAYER-201030418NA

PATIENT
  Sex: Female
  Weight: 88.435 kg

DRUGS (6)
  1. YASMIN [Suspect]
     Indication: POLYCYSTIC OVARIES
  2. YAZ [Suspect]
     Indication: CONTRACEPTION
     Dosage: UNK UNK, QD
     Route: 048
     Dates: start: 20060101, end: 20070108
  3. YAZ [Suspect]
     Indication: POLYCYSTIC OVARIES
     Dosage: UNK
     Dates: start: 20070101, end: 20070720
  4. METFORMIN [Concomitant]
  5. MOTRIN [Concomitant]
     Dosage: UNK UNK, PRN
  6. YASMIN [Suspect]
     Indication: CONTRACEPTION
     Dosage: UNK UNK, QD
     Route: 048
     Dates: start: 20060101, end: 20080101

REACTIONS (13)
  - DYSPEPSIA [None]
  - ABDOMINAL PAIN [None]
  - WEIGHT INCREASED [None]
  - GALLBLADDER CHOLESTEROLOSIS [None]
  - ABDOMINAL TENDERNESS [None]
  - CHOLELITHIASIS [None]
  - MENSTRUATION IRREGULAR [None]
  - ABDOMINAL PAIN UPPER [None]
  - VOMITING [None]
  - CHOLECYSTITIS CHRONIC [None]
  - METRORRHAGIA [None]
  - MUSCLE SWELLING [None]
  - NAUSEA [None]
